FAERS Safety Report 12984136 (Version 1)
Quarter: 2016Q4

REPORT INFORMATION
  Report Type: Spontaneous
  Country: US (occurrence: US)
  Receive Date: 20161129
  Receipt Date: 20161129
  Transmission Date: 20170207
  Serious: No
  Sender: FDA-Public Use
  Company Number: US-SA-2015SA192299

PATIENT
  Age: 52 Year
  Sex: Male

DRUGS (4)
  1. RENAGEL [Suspect]
     Active Substance: SEVELAMER HYDROCHLORIDE
     Route: 065
  2. SENSIPAR [Concomitant]
     Active Substance: CINACALCET HYDROCHLORIDE
  3. RENAGEL [Suspect]
     Active Substance: SEVELAMER HYDROCHLORIDE
     Dosage: DOSE: TAKING 5 BY MOUTH 1 OR 2 TIMES DAILY WITH MEALS AND 2 BID WITH SNACKS
     Route: 065
  4. RENAGEL [Suspect]
     Active Substance: SEVELAMER HYDROCHLORIDE
     Route: 065
     Dates: start: 201407

REACTIONS (4)
  - Drug dose omission [Unknown]
  - Incorrect product storage [Unknown]
  - Hyperphosphataemia [Unknown]
  - Overdose [Unknown]

NARRATIVE: CASE EVENT DATE: 201507
